FAERS Safety Report 10347035 (Version 2)
Quarter: 2014Q3

REPORT INFORMATION
  Report Type: Spontaneous
  Country: JP (occurrence: JP)
  Receive Date: 20140729
  Receipt Date: 20140729
  Transmission Date: 20150326
  Serious: Yes (Hospitalization)
  Sender: FDA-Public Use
  Company Number: PHJP2014JP000615

PATIENT
  Age: 75 Year
  Sex: Female

DRUGS (7)
  1. THEO-DUR [Concomitant]
     Active Substance: THEOPHYLLINE
     Dosage: UNK UKN, UNK
     Route: 048
  2. MONTELUKAST [Concomitant]
     Active Substance: MONTELUKAST SODIUM
     Dosage: UNK UKN, UNK
     Route: 048
  3. METHYCOBAL [Concomitant]
     Active Substance: METHYLCOBALAMIN
     Indication: PAIN
     Dosage: 3 DF, DAILY
     Route: 048
     Dates: start: 20130122, end: 20130303
  4. LOBU [Concomitant]
     Active Substance: LOBUCAVIR
     Indication: PAIN
     Dosage: UNK UKN, UNK
     Route: 048
     Dates: start: 20130122, end: 20130222
  5. ALENDRONATE [Concomitant]
     Active Substance: ALENDRONATE SODIUM
     Dosage: UNK UKN, UNK
     Route: 065
  6. TEGRETOL [Suspect]
     Active Substance: CARBAMAZEPINE
     Indication: TRIGEMINAL NEURALGIA
     Dosage: 200 MG, BID
     Route: 048
     Dates: start: 20130119, end: 20130222
  7. BUP-4 [Concomitant]
     Active Substance: PROPIVERINE
     Dosage: UNK UKN, UNK
     Route: 048

REACTIONS (3)
  - Oculomucocutaneous syndrome [Recovered/Resolved]
  - Oral mucosa erosion [Recovered/Resolved]
  - Rash erythematous [Recovered/Resolved]

NARRATIVE: CASE EVENT DATE: 20130222
